FAERS Safety Report 9587317 (Version 2)
Quarter: 2013Q4

REPORT INFORMATION
  Report Type: Spontaneous
  Country: US (occurrence: US)
  Receive Date: 20131003
  Receipt Date: 20131108
  Transmission Date: 20140711
  Serious: No
  Sender: FDA-Public Use
  Company Number: US-PFIZER INC-2013281305

PATIENT
  Age: 58 Year
  Sex: Male
  Weight: 97.51 kg

DRUGS (7)
  1. ZYVOX [Suspect]
     Indication: SKIN INFECTION
     Dosage: 600 MG, 2X/DAY
     Route: 048
     Dates: start: 20130914, end: 20130921
  2. ZYVOX [Suspect]
     Indication: STAPHYLOCOCCAL INFECTION
  3. ETODOLAC [Concomitant]
     Indication: NEUROPATHY PERIPHERAL
     Dosage: UNK
  4. METAXALONE [Concomitant]
     Indication: NERVOUS SYSTEM DISORDER
     Dosage: UNK
  5. PRILOSEC OTC [Concomitant]
     Dosage: UNK
  6. FLUTICASONE [Concomitant]
     Indication: NASAL DISORDER
     Dosage: UNK, AS NEEDED
     Route: 045
  7. ALEVE [Concomitant]
     Dosage: UNK, AS NEEDED

REACTIONS (7)
  - Mouth haemorrhage [Recovering/Resolving]
  - Dry mouth [Recovering/Resolving]
  - Rash [Recovering/Resolving]
  - Tongue discolouration [Recovering/Resolving]
  - Stomatitis [Recovering/Resolving]
  - Oral discomfort [Recovering/Resolving]
  - Glossitis [Recovering/Resolving]
